FAERS Safety Report 5940213-0 (Version None)
Quarter: 2008Q4

REPORT INFORMATION
  Report Type: 
  Country: None (occurrence: None)
  Receive Date: 20081104
  Receipt Date: 20081020
  Transmission Date: 20090506
  Serious: Yes (Hospitalization, Other)
  Sender: FDA-Public Use
  Company Number: FR-ELI_LILLY_AND_COMPANY-FR200810004564

PATIENT
  Sex: Male

DRUGS (3)
  1. GEMZAR [Suspect]
     Indication: LUNG ADENOCARCINOMA
     Dosage: 1748 MG, UNKNOWN
     Route: 065
     Dates: start: 20080306, end: 20080626
  2. ASPEGIC 325 [Concomitant]
     Indication: OEDEMA PERIPHERAL
     Dosage: UNK, UNKNOWN
     Route: 065
     Dates: start: 20080616
  3. LASIX [Concomitant]
     Indication: OEDEMA PERIPHERAL
     Dosage: UNK, UNKNOWN
     Route: 065
     Dates: start: 20080616

REACTIONS (5)
  - ANAEMIA [None]
  - ARRHYTHMIA [None]
  - KIDNEY FIBROSIS [None]
  - RENAL ARTERIOSCLEROSIS [None]
  - THROMBOTIC MICROANGIOPATHY [None]
